FAERS Safety Report 7348160-7 (Version None)
Quarter: 2011Q1

REPORT INFORMATION
  Report Type: 
  Country: None (occurrence: None)
  Receive Date: 20110311
  Receipt Date: 20110302
  Transmission Date: 20110831
  Serious: Yes (Hospitalization)
  Sender: FDA-Public Use
  Company Number: US-ASTRAZENECA-2010SE41119

PATIENT
  Age: 16792 Day
  Sex: Male
  Weight: 88.5 kg

DRUGS (12)
  1. XANAX [Concomitant]
  2. NEXIUM [Suspect]
     Indication: GASTROOESOPHAGEAL REFLUX DISEASE
     Route: 048
     Dates: start: 20090101
  3. SYMBICORT [Suspect]
     Dosage: UNKNOWN
     Route: 055
  4. PULMICORT RESPULES [Suspect]
     Indication: CHRONIC OBSTRUCTIVE PULMONARY DISEASE
     Route: 055
     Dates: start: 20080101
  5. SPIRIVA [Suspect]
     Route: 065
  6. SEROQUEL [Suspect]
     Indication: DEPRESSION
     Route: 048
     Dates: start: 20090101
  7. ZOPINEX [Concomitant]
  8. PEARL AIR INHALER [Concomitant]
  9. OXYCODONE [Concomitant]
  10. CELEBREX [Concomitant]
  11. TRIZANADINE [Concomitant]
  12. EFFEXOR XR [Concomitant]

REACTIONS (3)
  - RASH [None]
  - PNEUMONIA [None]
  - HEADACHE [None]
